FAERS Safety Report 5911764-X (Version None)
Quarter: 2008Q4

REPORT INFORMATION
  Report Type: 
  Country: None (occurrence: None)
  Receive Date: 20081003
  Receipt Date: 20080930
  Transmission Date: 20090506
  Serious: Yes (Other)
  Sender: FDA-Public Use
  Company Number: THQ2008A01945

PATIENT
  Sex: Male

DRUGS (1)
  1. ZOTON FASTAB (LANSOPRAZOLE) (TABLETS) [Suspect]
     Dosage: PER ORAL
     Route: 048

REACTIONS (2)
  - CARDIAC DISORDER [None]
  - RASH GENERALISED [None]
